FAERS Safety Report 22971541 (Version 2)
Quarter: 2023Q4

REPORT INFORMATION
  Report Type: Spontaneous
  Country: DE (occurrence: None)
  Receive Date: 20230922
  Receipt Date: 20231014
  Transmission Date: 20240109
  Serious: Yes (Other)
  Sender: FDA-Public Use
  Company Number: DE-ROCHE-3420590

PATIENT
  Age: 82 Year
  Sex: Male

DRUGS (1)
  1. VABYSMO [Suspect]
     Active Substance: FARICIMAB-SVOA
     Indication: Product used for unknown indication
     Route: 065
     Dates: start: 20230829

REACTIONS (4)
  - Endophthalmitis [Unknown]
  - Hypopyon [Unknown]
  - Blindness [Unknown]
  - Eye irritation [Recovered/Resolved]
